FAERS Safety Report 16023641 (Version 2)
Quarter: 2019Q1

REPORT INFORMATION
  Report Type: Spontaneous
  Country: JP (occurrence: JP)
  Receive Date: 20190301
  Receipt Date: 20190322
  Transmission Date: 20190418
  Serious: Yes (Other)
  Sender: FDA-Public Use
  Company Number: JP-ASTRAZENECA-2019SE32076

PATIENT
  Age: 50 Year
  Sex: Male

DRUGS (1)
  1. IMFINZI [Suspect]
     Active Substance: DURVALUMAB
     Indication: NON-SMALL CELL LUNG CANCER
     Route: 041
     Dates: start: 20180919

REACTIONS (3)
  - Encephalitis [Not Recovered/Not Resolved]
  - Cerebrovascular insufficiency [Unknown]
  - Cerebral vascular occlusion [Unknown]
